FAERS Safety Report 6878474-6 (Version None)
Quarter: 2010Q3

REPORT INFORMATION
  Report Type: 
  Country: None (occurrence: None)
  Receive Date: 20100728
  Receipt Date: 20100723
  Transmission Date: 20110219
  Serious: Yes (Hospitalization)
  Sender: FDA-Public Use
  Company Number: US-MERCK-1007USA02939

PATIENT
  Age: 74 Year
  Sex: Female

DRUGS (1)
  1. FOSAMAX [Suspect]
     Route: 065

REACTIONS (1)
  - HAEMORRHAGE [None]
